FAERS Safety Report 22196748 (Version 1)
Quarter: 2023Q2

REPORT INFORMATION
  Report Type: Spontaneous
  Country: US (occurrence: None)
  Receive Date: 20230410
  Receipt Date: 20230410
  Transmission Date: 20230722
  Serious: Yes (Other)
  Sender: FDA-Public Use
  Company Number: None

PATIENT
  Age: 47 Year
  Sex: Male

DRUGS (1)
  1. NUCALA [Suspect]
     Active Substance: MEPOLIZUMAB
     Indication: Asthma
     Dosage: 100MG/ML  EVERY 4 WEEKS SQ???TREATMENT START DATE: 07-JUL-2022 AND STOP  4/10/2022
     Route: 058
     Dates: start: 20220707, end: 20220410

REACTIONS (1)
  - Arthralgia [None]

NARRATIVE: CASE EVENT DATE: 20230410
